FAERS Safety Report 5089617-1 (Version None)
Quarter: 2006Q3

REPORT INFORMATION
  Report Type: 
  Country: None (occurrence: None)
  Receive Date: 20060822
  Receipt Date: 20060809
  Transmission Date: 20061208
  Serious: Yes (Hospitalization, Disabling)
  Sender: FDA-Public Use
  Company Number: 2006011169

PATIENT
  Age: 57 Year
  Sex: Male
  Weight: 94.8 kg

DRUGS (8)
  1. SUTENT [Suspect]
     Indication: GASTROINTESTINAL STROMAL TUMOUR
     Dosage: SEE IMAGE
     Route: 048
     Dates: start: 20060218, end: 20060222
  2. SUTENT [Suspect]
     Indication: GASTROINTESTINAL STROMAL TUMOUR
     Dosage: SEE IMAGE
     Route: 048
     Dates: start: 20060106
  3. ATENOLOL [Concomitant]
  4. NORVASC [Concomitant]
  5. LIPITOR [Concomitant]
  6. ASPIRIN [Concomitant]
  7. NITROGLYCERIN (NIROGLYCERIN) [Concomitant]
  8. HYTRIN [Concomitant]

REACTIONS (21)
  - CELLULITIS [None]
  - CSF PROTEIN INCREASED [None]
  - DEMYELINATION [None]
  - DYSSTASIA [None]
  - GAIT DISTURBANCE [None]
  - GASTROINTESTINAL STROMAL TUMOUR [None]
  - GUILLAIN-BARRE SYNDROME [None]
  - INFECTION [None]
  - MALAISE [None]
  - MUSCULAR WEAKNESS [None]
  - MUSCULOSKELETAL DISCOMFORT [None]
  - MUSCULOSKELETAL PAIN [None]
  - NEOPLASM PROGRESSION [None]
  - NEUROPATHY PERIPHERAL [None]
  - PAIN IN EXTREMITY [None]
  - PALMAR-PLANTAR ERYTHRODYSAESTHESIA SYNDROME [None]
  - PANCYTOPENIA [None]
  - PYREXIA [None]
  - THERAPY NON-RESPONDER [None]
  - WALKING AID USER [None]
  - WHEELCHAIR USER [None]
